FAERS Safety Report 10060594 (Version 1)
Quarter: 2014Q2

REPORT INFORMATION
  Report Type: Spontaneous
  Country: US (occurrence: US)
  Receive Date: 20140404
  Receipt Date: 20140404
  Transmission Date: 20141212
  Serious: Yes (Other)
  Sender: FDA-Public Use
  Company Number: US-ELI_LILLY_AND_COMPANY-US201403009001

PATIENT
  Sex: Male

DRUGS (2)
  1. ALIMTA [Suspect]
     Indication: LUNG NEOPLASM MALIGNANT
     Route: 065
  2. CARBOPLATIN [Suspect]
     Indication: LUNG NEOPLASM MALIGNANT
     Route: 065

REACTIONS (2)
  - Convulsion [Unknown]
  - Off label use [Unknown]
